FAERS Safety Report 4777845-1 (Version None)
Quarter: 2005Q3

REPORT INFORMATION
  Report Type: 
  Country: None (occurrence: None)
  Receive Date: 20050915
  Receipt Date: 20050824
  Transmission Date: 20060218
  Serious: No
  Sender: FDA-Public Use
  Company Number: CA_050708425

PATIENT
  Age: 56 Year
  Sex: Female

DRUGS (12)
  1. FORTEO [Suspect]
     Indication: OSTEOPOROSIS
     Dosage: 20 UG/1 DAY
     Dates: start: 20050608
  2. ATENOLOL [Concomitant]
  3. LIPITOR [Concomitant]
  4. TRIAZIDE (TRICHLORMETHIAZIDE) [Concomitant]
  5. CODEINE [Concomitant]
  6. PLAVIX (CLOPIODGREL SULFATE) [Concomitant]
  7. POTASSIUM CHLORIDE [Concomitant]
  8. CELEXA [Concomitant]
  9. PANTALOC (PANTALOC) [Concomitant]
  10. EZETROL (EZETIMIBE) [Concomitant]
  11. SYNTHROID [Concomitant]
  12. CALCIUM GLUCONATE [Concomitant]

REACTIONS (4)
  - ANAPHYLACTIC REACTION [None]
  - FOOD ALLERGY [None]
  - HEADACHE [None]
  - MUSCLE SPASMS [None]
